FAERS Safety Report 9407200 (Version 1)
Quarter: 2013Q3

REPORT INFORMATION
  Report Type: Spontaneous
  Country: US (occurrence: US)
  Receive Date: 20130718
  Receipt Date: 20130718
  Transmission Date: 20140515
  Serious: No
  Sender: FDA-Public Use
  Company Number: US-TEVA-419525USA

PATIENT
  Sex: Female

DRUGS (1)
  1. QVAR [Suspect]
     Route: 055

REACTIONS (4)
  - Oral discomfort [Unknown]
  - Tremor [Unknown]
  - Oxygen saturation decreased [Unknown]
  - Dizziness [Unknown]
